FAERS Safety Report 11355100 (Version 2)
Quarter: 2015Q3

REPORT INFORMATION
  Report Type: Spontaneous
  Country: US (occurrence: US)
  Receive Date: 20150807
  Receipt Date: 20150908
  Transmission Date: 20151125
  Serious: Yes (Hospitalization, Other)
  Sender: FDA-Public Use
  Company Number: US-BAYER-2015-394386

PATIENT
  Age: 29 Year
  Sex: Female
  Weight: 90.25 kg

DRUGS (2)
  1. DOXYCYCLINE HYCLATE. [Concomitant]
     Active Substance: DOXYCYCLINE HYCLATE
     Dosage: 100 MG, BID
     Route: 048
  2. MIRENA [Suspect]
     Active Substance: LEVONORGESTREL
     Indication: CONTRACEPTION
     Dosage: 20 MCG/24HR, CONT
     Route: 015
     Dates: start: 20091214, end: 20150327

REACTIONS (11)
  - Necrosis [None]
  - Device issue [None]
  - Device dislocation [None]
  - Genital haemorrhage [None]
  - Post procedural haematoma [None]
  - Wound dehiscence [None]
  - Postoperative wound infection [None]
  - Seroma [None]
  - Injury [None]
  - Pain [None]
  - Device use error [None]

NARRATIVE: CASE EVENT DATE: 201412
